FAERS Safety Report 22215373 (Version 4)
Quarter: 2023Q2

REPORT INFORMATION
  Report Type: Spontaneous
  Country: BE (occurrence: BE)
  Receive Date: 20230416
  Receipt Date: 20230606
  Transmission Date: 20230721
  Serious: Yes (Hospitalization, Other)
  Sender: FDA-Public Use
  Company Number: BE-PFIZER INC-PV202300060627

PATIENT
  Age: 84 Year
  Sex: Male

DRUGS (39)
  1. BISOPROLOL [Suspect]
     Active Substance: BISOPROLOL
     Indication: Hypertension
     Dosage: 5 MILLIGRAM, ONCE A DAY (5 MG, 1X/DAY) (0.25 DAY)
     Route: 048
     Dates: start: 20230303, end: 20230310
  2. BISOPROLOL [Suspect]
     Active Substance: BISOPROLOL
     Dosage: 5 MILLIGRAM, ONCE A DAY (5 MG, 1X/DAY) (0.25 DAY)
     Route: 048
     Dates: start: 2015, end: 20230227
  3. ACORAMIDIS [Suspect]
     Active Substance: ACORAMIDIS
     Indication: Product used for unknown indication
     Dosage: UNK
     Route: 065
     Dates: start: 20220816, end: 20230309
  4. BUMETANIDE [Suspect]
     Active Substance: BUMETANIDE
     Indication: Cardiac failure
     Dosage: 0.5 MILLIGRAM, ONCE A DAY(0.5 MG, 1X/DAY)
     Route: 048
     Dates: start: 20220517, end: 20230310
  5. BUMETANIDE [Suspect]
     Active Substance: BUMETANIDE
     Indication: Cardiac failure
     Dosage: 0.5 MILLIGRAM, ONCE A DAY(0.5 MG, 1X/DAY)
     Route: 042
     Dates: start: 20230308, end: 20230308
  6. BUMETANIDE [Suspect]
     Active Substance: BUMETANIDE
     Dosage: 1 MILLIGRAM, FOUR TIMES/DAY
     Route: 048
     Dates: start: 20220401, end: 20220516
  7. BUMETANIDE [Suspect]
     Active Substance: BUMETANIDE
     Dosage: 0.5 MILLIGRAM, FOUR TIMES/DAY
     Route: 048
     Dates: start: 20220517, end: 20230310
  8. BUMETANIDE [Suspect]
     Active Substance: BUMETANIDE
     Dosage: 2 MILLIGRAM, ONCE A DAY
     Route: 042
     Dates: start: 20230308, end: 20230308
  9. DAPAGLIFLOZIN [Suspect]
     Active Substance: DAPAGLIFLOZIN
     Indication: Cardiac failure
     Dosage: 10 MILLIGRAM, ONCE A DAY (10 MG, 1X/DAY)
     Route: 048
     Dates: start: 20220330, end: 20230310
  10. SPIRONOLACTONE [Suspect]
     Active Substance: SPIRONOLACTONE
     Indication: Left ventricular hypertrophy
     Dosage: 25 MILLIGRAM, ONCE A DAY (25 MG, 1X/DAY) (0.25 DAY)
     Route: 048
     Dates: start: 201712, end: 20230310
  11. ACETYLCYSTEINE [Concomitant]
     Active Substance: ACETYLCYSTEINE
     Indication: Cough
     Dosage: 600 MILLIGRAM, ONCE A DAY (600 MG, 1X/DAY) (0.25 DAY)
     Route: 048
     Dates: start: 20191125
  12. ASPIRIN [Concomitant]
     Active Substance: ASPIRIN
     Indication: Thrombosis prophylaxis
     Dosage: 80 MILLIGRAM, ONCE A DAY (0.25 DAY)
     Route: 048
     Dates: start: 2015, end: 20230305
  13. CORDARONE [Concomitant]
     Active Substance: AMIODARONE HYDROCHLORIDE
     Indication: Atrial fibrillation
     Dosage: 200 MILLIGRAM, ONCE A DAY (200 MG, 1X/DAY FOR AN UNREPORTED INDICATION)
     Route: 048
     Dates: start: 20230309
  14. CORDARONE [Concomitant]
     Active Substance: AMIODARONE HYDROCHLORIDE
     Dosage: 300 MILLIGRAM, ONCE A DAY (300 MG, 1X/DAY)
     Route: 042
     Dates: start: 20230309
  15. CEFAZOLIN [Concomitant]
     Active Substance: CEFAZOLIN
     Indication: Sedative therapy
     Dosage: 2 GRAM, ONCE A DAY
     Route: 042
     Dates: start: 20230301
  16. CEFAZOLIN [Concomitant]
     Active Substance: CEFAZOLIN
     Indication: Sedation
  17. TRAMADOL HYDROCHLORIDE [Concomitant]
     Active Substance: TRAMADOL HYDROCHLORIDE
     Indication: Pain
     Dosage: 150 MILLIGRAM, ONCE A DAY
     Route: 042
     Dates: start: 20230302
  18. COVID-19 vaccine [Concomitant]
     Indication: COVID-19
     Dosage: UNK
     Route: 058
     Dates: start: 20210331
  19. COVID-19 vaccine [Concomitant]
     Dosage: UNK
     Route: 058
     Dates: start: 20210505
  20. CORDARONE [Concomitant]
     Active Substance: AMIODARONE HYDROCHLORIDE
     Indication: Atrial fibrillation
     Dosage: 200 MILLIGRAM, FOUR TIMES/DAY
     Route: 048
  21. CORDARONE [Concomitant]
     Active Substance: AMIODARONE HYDROCHLORIDE
     Dosage: UNK
     Route: 042
     Dates: start: 20230309
  22. ENOXAPARIN SODIUM [Concomitant]
     Active Substance: ENOXAPARIN SODIUM
     Indication: Thrombosis
     Dosage: 40 MILLIGRAM, FOUR TIMES/DAY
     Route: 058
  23. DIAMOX SEQUELS [Concomitant]
     Active Substance: ACETAZOLAMIDE
     Indication: Cardiac failure
     Dosage: 500 MILLIGRAM, ONCE A DAY
     Route: 042
     Dates: start: 20230308
  24. DIMETHICONE [Concomitant]
     Active Substance: DIMETHICONE
     Indication: Prophylaxis
     Dosage: 2 DOSAGE FORM, ONCE A DAY (1 APPLICATION, 2X/DAY)
     Route: 061
     Dates: start: 20230309
  25. ENTRESTO [Concomitant]
     Active Substance: SACUBITRIL\VALSARTAN
     Indication: Cardiac failure
     Dosage: ONCE A DAY ([SACUBITRIL 24MG]/[VALSARTAN 26MG], 0.5 CO
     Route: 048
     Dates: start: 20230309, end: 20230310
  26. FOLIC ACID [Concomitant]
     Active Substance: FOLIC ACID
     Indication: Folate deficiency
     Dosage: 4 MILLIGRAM, ONCE A DAY (4 MG, 1X/DAY FOR AN UNREPORTED INDICATION)
     Route: 048
     Dates: start: 20230302
  27. FENTANYL [Concomitant]
     Active Substance: FENTANYL
     Indication: Sedative therapy
     Dosage: 0.05 MILLIGRAM, ONCE A DAY
     Route: 042
     Dates: start: 20230301, end: 20230301
  28. IMODIUM [Concomitant]
     Active Substance: LOPERAMIDE HYDROCHLORIDE
     Indication: Diarrhoea
     Dosage: 2 MILLIGRAM, AS NECESSARY
     Route: 048
     Dates: start: 20230115
  29. IMODIUM [Concomitant]
     Active Substance: LOPERAMIDE HYDROCHLORIDE
     Dosage: 2 MILLIGRAM, FOUR TIMES/DAY
     Route: 048
     Dates: start: 20230109, end: 20230114
  30. ISOPROTERENOL HYDROCHLORIDE [Concomitant]
     Active Substance: ISOPROTERENOL HYDROCHLORIDE
     Indication: Bradycardia
     Dosage: 0.2 MILLIGRAM PER MILLILITRE
     Route: 042
     Dates: start: 20230227
  31. EDOXABAN TOSYLATE [Concomitant]
     Active Substance: EDOXABAN TOSYLATE
     Indication: Atrial fibrillation
     Dosage: 30 MILLIGRAM, ONCE A DAY (30 MG, 1X/DAY FOR AN UNREPORTED) (0.25 DAY)
     Route: 048
     Dates: start: 20230306
  32. ALIZAPRIDE HYDROCHLORIDE [Concomitant]
     Active Substance: ALIZAPRIDE HYDROCHLORIDE
     Indication: Nausea
     Dosage: 50 MILLIGRAM, ONCE A DAY
     Route: 042
     Dates: start: 20230302
  33. MOMETASONE [Concomitant]
     Active Substance: MOMETASONE
     Indication: Rhinitis prophylaxis
     Dosage: UNK, AS NECESSARY
     Route: 045
     Dates: start: 20220214
  34. MAGNESIUM [Concomitant]
     Active Substance: MAGNESIUM
     Indication: Magnesium deficiency
     Dosage: 3 GRAM, ONCE A DAY (3 G, 1X/DAY) (0.25 DAY)
     Route: 042
     Dates: start: 20230302
  35. Pantomed [Concomitant]
     Indication: Prophylaxis
     Dosage: 40 MILLIGRAM, ONCE A DAY (40 MG, 1X/DAY) (0.25 DAY)
     Route: 048
     Dates: start: 2009
  36. PROPOFOL [Concomitant]
     Active Substance: PROPOFOL
     Indication: Sedative therapy
     Dosage: 40 MILLIGRAM, ONCE A DAY
     Route: 042
     Dates: start: 20230309
  37. PROSHIELD [Concomitant]
     Indication: Skin irritation
     Dosage: TWO TIMES A DAY
     Route: 061
     Dates: start: 20230309
  38. SIMVASTATIN [Concomitant]
     Active Substance: SIMVASTATIN
     Indication: Hypercholesterolaemia
     Dosage: 20 MILLIGRAM, ONCE A DAY (20 MG, 1X/DAY) (0.25 DAY)
     Route: 048
     Dates: start: 2017
  39. TAMSULOSIN [Concomitant]
     Active Substance: TAMSULOSIN
     Indication: Benign prostatic hyperplasia
     Dosage: 0.4 MILLIGRAM, ONCE A DAY (0.4 MG, 1X/DAY) (0.25 MG)
     Route: 048
     Dates: start: 2009

REACTIONS (3)
  - Acute kidney injury [Recovered/Resolved]
  - Atrial fibrillation [Recovered/Resolved]
  - Atrioventricular block [Recovered/Resolved]

NARRATIVE: CASE EVENT DATE: 20230227
